FAERS Safety Report 5987101-1 (Version None)
Quarter: 2008Q4

REPORT INFORMATION
  Report Type: 
  Country: None (occurrence: None)
  Receive Date: 20081209
  Receipt Date: 20081201
  Transmission Date: 20090506
  Serious: Yes (Hospitalization)
  Sender: FDA-Public Use
  Company Number: GR-ABBOTT-08P-066-0483383-00

PATIENT
  Sex: Female
  Weight: 52 kg

DRUGS (6)
  1. ZEMPLAR [Suspect]
     Indication: HYPERPARATHYROIDISM SECONDARY
     Route: 042
     Dates: start: 20080304
  2. SEVELAMER [Concomitant]
     Indication: HYPERPHOSPHATAEMIA
     Route: 048
  3. LIPITAC [Concomitant]
     Indication: DYSLIPIDAEMIA
     Route: 048
  4. CLOPIDOGREL [Concomitant]
     Indication: ANTIPLATELET THERAPY
     Route: 048
  5. FOLIC ACID [Concomitant]
     Indication: ANAEMIA
     Route: 048
  6. THYRORMONE [Concomitant]
     Indication: HYPOTHYROIDISM
     Route: 048

REACTIONS (1)
  - HAEMORRHAGE [None]
